FAERS Safety Report 6205589-8 (Version None)
Quarter: 2009Q2

REPORT INFORMATION
  Report Type: 
  Country: None (occurrence: None)
  Receive Date: 20090527
  Receipt Date: 20090406
  Transmission Date: 20091009
  Serious: No
  Sender: FDA-Public Use
  Company Number: US-ABBOTT-09P-163-0566778-00

PATIENT
  Sex: Female
  Weight: 83.99 kg

DRUGS (3)
  1. SIMCOR [Suspect]
     Indication: BLOOD CHOLESTEROL INCREASED
     Dates: start: 20090326, end: 20090401
  2. ATENOLOL [Concomitant]
     Indication: HYPERTENSION
     Dates: start: 19850101
  3. LISINOPRIL [Concomitant]
     Indication: HYPERTENSION
     Dosage: 20/ 12.5

REACTIONS (1)
  - NAUSEA [None]
